FAERS Safety Report 4893525-6 (Version None)
Quarter: 2006Q1

REPORT INFORMATION
  Report Type: 
  Country: None (occurrence: None)
  Receive Date: 20060125
  Receipt Date: 20060125
  Transmission Date: 20060701
  Serious: Yes (Other)
  Sender: FDA-Public Use
  Company Number: None

PATIENT
  Sex: Female
  Weight: 47.7 kg

DRUGS (2)
  1. GEMCITABINE [Suspect]
     Indication: HODGKIN'S DISEASE
     Dosage: SEE IMAGE
     Route: 042
     Dates: start: 20060104
  2. VINORELBINE [Suspect]
     Dosage: SEE IMAGE
     Route: 042
     Dates: start: 20060104, end: 20060111

REACTIONS (1)
  - ALANINE AMINOTRANSFERASE INCREASED [None]
